FAERS Safety Report 12506677 (Version 1)
Quarter: 2016Q2

REPORT INFORMATION
  Report Type: Spontaneous
  Country: US (occurrence: US)
  Receive Date: 20160628
  Receipt Date: 20160628
  Transmission Date: 20160815
  Serious: No
  Sender: FDA-Public Use
  Company Number: US-BRACCO-012631

PATIENT
  Sex: Male

DRUGS (1)
  1. MULTIHANCE [Suspect]
     Active Substance: GADOBENATE DIMEGLUMINE
     Indication: DIAGNOSTIC PROCEDURE
     Dates: start: 20150730, end: 20150730

REACTIONS (3)
  - Cough [Unknown]
  - Dysphonia [Unknown]
  - Vomiting [Unknown]

NARRATIVE: CASE EVENT DATE: 20150730
